FAERS Safety Report 25170422 (Version 1)
Quarter: 2025Q2

REPORT INFORMATION
  Report Type: Spontaneous
  Country: US (occurrence: US)
  Receive Date: 20250408
  Receipt Date: 20250408
  Transmission Date: 20250717
  Serious: Yes (Hospitalization)
  Sender: NOVO NORDISK
  Company Number: US-NOVOPROD-1400427

PATIENT
  Age: 61 Year
  Sex: Female

DRUGS (1)
  1. TRESIBA [Suspect]
     Active Substance: INSULIN DEGLUDEC
     Indication: Type 2 diabetes mellitus
     Route: 058
     Dates: start: 202408

REACTIONS (8)
  - Knee operation [Unknown]
  - Visual impairment [Unknown]
  - Intraocular pressure increased [Not Recovered/Not Resolved]
  - Vitreous floaters [Not Recovered/Not Resolved]
  - Abdominal distension [Not Recovered/Not Resolved]
  - Weight increased [Unknown]
  - Vision blurred [Not Recovered/Not Resolved]
  - Glycosylated haemoglobin increased [Recovering/Resolving]

NARRATIVE: CASE EVENT DATE: 20240801
